FAERS Safety Report 6761747-5 (Version None)
Quarter: 2010Q2

REPORT INFORMATION
  Report Type: 
  Country: None (occurrence: None)
  Receive Date: 20100609
  Receipt Date: 20100601
  Transmission Date: 20101027
  Serious: Yes (Other)
  Sender: FDA-Public Use
  Company Number: FR-WYE-G06210010

PATIENT
  Sex: Male

DRUGS (1)
  1. TAZOCILLINE [Suspect]
     Dosage: UNKNOWN
     Route: 042
     Dates: start: 20100520, end: 20100529

REACTIONS (3)
  - EPISTAXIS [None]
  - INFUSION SITE HAEMORRHAGE [None]
  - PLATELET AGGREGATION ABNORMAL [None]
